FAERS Safety Report 6965943-3 (Version None)
Quarter: 2010Q3

REPORT INFORMATION
  Report Type: 
  Country: None (occurrence: None)
  Receive Date: 20100823
  Receipt Date: 20100524
  Transmission Date: 20110219
  Serious: No
  Sender: FDA-Public Use
  Company Number: 012525

PATIENT
  Sex: Female
  Weight: 70.4 kg

DRUGS (7)
  1. CIMZIA [Suspect]
     Indication: CROHN'S DISEASE
     Dosage: (SUBCUTANEOUS)
     Route: 058
     Dates: start: 20091001
  2. ASACOL [Concomitant]
  3. FOLIC ACID [Concomitant]
  4. IRON [Concomitant]
  5. VITAMIN B-12 [Concomitant]
  6. PRILOSEC [Concomitant]
  7. PRENATAL VITAMINS /01549301/ [Concomitant]

REACTIONS (1)
  - PREGNANCY [None]
